FAERS Safety Report 20920310 (Version 1)
Quarter: 2022Q2

REPORT INFORMATION
  Report Type: Spontaneous
  Country: US (occurrence: None)
  Receive Date: 20220606
  Receipt Date: 20220606
  Transmission Date: 20220721
  Serious: Yes (Hospitalization)
  Sender: FDA-Public Use
  Company Number: None

PATIENT
  Age: 74 Year
  Sex: Male

DRUGS (1)
  1. METHOTREXATE [Suspect]
     Active Substance: METHOTREXATE
     Indication: Fungal infection
     Dates: start: 20210113, end: 20220525

REACTIONS (4)
  - Thrombocytopenia [None]
  - Leukopenia [None]
  - Anaemia [None]
  - Mucosal inflammation [None]

NARRATIVE: CASE EVENT DATE: 20220520
